FAERS Safety Report 5710671-5 (Version None)
Quarter: 2008Q2

REPORT INFORMATION
  Report Type: 
  Country: None (occurrence: None)
  Receive Date: 20080415
  Receipt Date: 20080407
  Transmission Date: 20081010
  Serious: Yes (Death, Other)
  Sender: FDA-Public Use
  Company Number: 2006JP000479

PATIENT
  Age: 61 Year
  Sex: Female

DRUGS (13)
  1. FUNGUARD(MICAFUNGIN) INJECTION [Suspect]
     Indication: PULMONARY MYCOSIS
     Dosage: 300 MG, UID/QD, IV DRIP
     Route: 041
     Dates: start: 20060131, end: 20060228
  2. CEFTAZIDIME [Concomitant]
  3. NITRAZEPAM [Concomitant]
  4. LASIX [Concomitant]
  5. LANSOPRAZOLE [Concomitant]
  6. MAGNESIUM OXIDE (MAGNESIUM OXIDE) [Concomitant]
  7. MEDROL [Concomitant]
  8. ADEROXAL (PYRIDOXAL PHOSPHATE) [Concomitant]
  9. ASPARA K (ASPARTATE POTASSIUM) [Concomitant]
  10. ISONIAZID [Concomitant]
  11. ITRACONAZOLE [Concomitant]
  12. PYDOXAL (PYRIDOXAL PHOSPHATE) [Concomitant]
  13. PREDNISOLONE [Concomitant]

REACTIONS (7)
  - BRONCHOPULMONARY ASPERGILLOSIS [None]
  - CONDITION AGGRAVATED [None]
  - INFUSION SITE EXTRAVASATION [None]
  - INFUSION SITE NECROSIS [None]
  - PLATELET COUNT DECREASED [None]
  - PSEUDOMONAS INFECTION [None]
  - SKIN ULCER [None]
